FAERS Safety Report 15440585 (Version 1)
Quarter: 2018Q3

REPORT INFORMATION
  Report Type: Spontaneous
  Country: US (occurrence: US)
  Receive Date: 20180928
  Receipt Date: 20180928
  Transmission Date: 20181010
  Serious: Yes (Death, Life-Threatening, Hospitalization, Other)
  Sender: FDA-Public Use
  Company Number: US-PFIZER INC-2018390583

PATIENT
  Sex: Male

DRUGS (1)
  1. AMIODARONE HCL [Suspect]
     Active Substance: AMIODARONE HYDROCHLORIDE
     Indication: ATRIAL FIBRILLATION
     Dosage: 200 MG, UNK
     Route: 048
     Dates: start: 201707

REACTIONS (4)
  - Pulmonary toxicity [Fatal]
  - Cardiomyopathy [Unknown]
  - Multiple organ dysfunction syndrome [Unknown]
  - Renal failure [Fatal]

NARRATIVE: CASE EVENT DATE: 201707
